FAERS Safety Report 16323961 (Version 1)
Quarter: 2019Q2

REPORT INFORMATION
  Report Type: Spontaneous
  Country: GB (occurrence: GB)
  Receive Date: 20190517
  Receipt Date: 20190517
  Transmission Date: 20190711
  Serious: Yes (Hospitalization, Other)
  Sender: FDA-Public Use
  Company Number: GB-LUPIN PHARMACEUTICALS INC.-2019-02909

PATIENT
  Age: 79 Year
  Sex: Female

DRUGS (1)
  1. MORPHINE [Suspect]
     Active Substance: MORPHINE
     Indication: BREAKTHROUGH PAIN
     Dosage: UNK, PRN
     Route: 048

REACTIONS (5)
  - Decreased appetite [Unknown]
  - Oesophageal dilatation [Unknown]
  - Intestinal dilatation [Unknown]
  - Constipation [Recovered/Resolved]
  - Gastric dilatation [Unknown]
